FAERS Safety Report 6581787-9 (Version None)
Quarter: 2010Q1

REPORT INFORMATION
  Report Type: 
  Country: None (occurrence: None)
  Receive Date: 20100215
  Receipt Date: 20100209
  Transmission Date: 20100710
  Serious: Yes (Other)
  Sender: FDA-Public Use
  Company Number: PHHY2009BR40688

PATIENT
  Sex: Female
  Weight: 88 kg

DRUGS (1)
  1. FEMARA [Suspect]
     Indication: BREAST CANCER
     Dosage: 1 TABLET (2.5 MG) DAILY
     Route: 048

REACTIONS (3)
  - BREAST OPERATION [None]
  - MAMMOPLASTY [None]
  - POSTOPERATIVE WOUND COMPLICATION [None]
